FAERS Safety Report 7899853-4 (Version None)
Quarter: 2011Q4

REPORT INFORMATION
  Report Type: 
  Country: None (occurrence: None)
  Receive Date: 20111107
  Receipt Date: 20110926
  Transmission Date: 20120403
  Serious: No
  Sender: FDA-Public Use
  Company Number: US-AMGEN-USASP2011046242

PATIENT
  Age: 46 Year
  Sex: Female
  Weight: 75.283 kg

DRUGS (1)
  1. ENBREL [Suspect]
     Indication: PSORIATIC ARTHROPATHY
     Dosage: 50 MG, QWK
     Route: 058
     Dates: start: 20051005

REACTIONS (7)
  - NAUSEA [None]
  - MALAISE [None]
  - FATIGUE [None]
  - DIARRHOEA [None]
  - PAIN [None]
  - HEADACHE [None]
  - WEIGHT DECREASED [None]
